FAERS Safety Report 17345156 (Version 1)
Quarter: 2020Q1

REPORT INFORMATION
  Report Type: Spontaneous
  Country: US (occurrence: US)
  Receive Date: 20200129
  Receipt Date: 20200129
  Transmission Date: 20200409
  Serious: No
  Sender: FDA-Public Use
  Company Number: US-ALLERGAN-1945337US

PATIENT
  Sex: Female

DRUGS (1)
  1. BOTOX [Suspect]
     Active Substance: ONABOTULINUMTOXINA
     Indication: PRODUCT USED FOR UNKNOWN INDICATION
     Dosage: UNK, SINGLE
     Dates: start: 20190927, end: 20190927

REACTIONS (3)
  - Eyelid ptosis [Unknown]
  - Brow ptosis [Unknown]
  - Eyelid sensory disorder [Unknown]

NARRATIVE: CASE EVENT DATE: 2019
